FAERS Safety Report 23289936 (Version 3)
Quarter: 2024Q2

REPORT INFORMATION
  Report Type: Report from Study
  Country: US (occurrence: US)
  Receive Date: 20231212
  Receipt Date: 20240624
  Transmission Date: 20240716
  Serious: Yes (Hospitalization, Other)
  Sender: FDA-Public Use
  Company Number: US-ABBVIE-5530966

PATIENT
  Sex: Male

DRUGS (3)
  1. VENCLEXTA [Suspect]
     Active Substance: VENETOCLAX
     Indication: Acute myeloid leukaemia
     Dosage: FORM STRENGTH: 200 MILLIGRAM?PRESCRIBED FOR 5 DAYS
     Route: 048
     Dates: start: 202311, end: 202405
  2. VENCLEXTA [Suspect]
     Active Substance: VENETOCLAX
     Indication: Acute myeloid leukaemia
     Dosage: FIRST ADMIN DATE: 2024
     Route: 048
  3. VIDAZA [Concomitant]
     Active Substance: AZACITIDINE
     Indication: Product used for unknown indication

REACTIONS (6)
  - Chemotherapy [Unknown]
  - Nausea [Recovered/Resolved]
  - Epistaxis [Recovered/Resolved]
  - Red blood cell count decreased [Unknown]
  - Full blood count decreased [Unknown]
  - Transplant [Unknown]

NARRATIVE: CASE EVENT DATE: 20230101
